FAERS Safety Report 7439440-5 (Version None)
Quarter: 2011Q2

REPORT INFORMATION
  Report Type: 
  Country: None (occurrence: None)
  Receive Date: 20110427
  Receipt Date: 20110329
  Transmission Date: 20111010
  Serious: Yes (Hospitalization, Other)
  Sender: FDA-Public Use
  Company Number: US-BAYER-201037034NA

PATIENT
  Age: 25 Year
  Sex: Female
  Weight: 98 kg

DRUGS (7)
  1. XANAX [Concomitant]
     Indication: ANXIETY
     Dosage: UNK UNK, BID
     Route: 048
  2. OCELLA [Suspect]
     Indication: PRODUCT USED FOR UNKNOWN INDICATION
     Dosage: UNK
     Dates: start: 20080701, end: 20081001
  3. ROXICODONE [Concomitant]
     Indication: BACK PAIN
     Dosage: UNK UNK, QID
  4. YASMIN [Suspect]
     Indication: PRODUCT USED FOR UNKNOWN INDICATION
     Dosage: UNK
     Dates: start: 20061101, end: 20070701
  5. COPAXONE [Concomitant]
     Indication: MULTIPLE SCLEROSIS
     Dosage: 20 MG, QD
  6. METFORMIN [Concomitant]
     Indication: POLYCYSTIC OVARIES
     Dosage: UNK UNK, BID
     Route: 048
  7. NUVARING [Concomitant]

REACTIONS (6)
  - CENTRAL VENOUS CATHETER REMOVAL [None]
  - SUBCLAVIAN VEIN THROMBOSIS [None]
  - VENA CAVA THROMBOSIS [None]
  - EMOTIONAL DISTRESS [None]
  - THROMBOSIS [None]
  - PAIN [None]
